FAERS Safety Report 9470939 (Version 1)
Quarter: 2013Q3

REPORT INFORMATION
  Report Type: Report from Study
  Country: US (occurrence: US)
  Receive Date: 20130822
  Receipt Date: 20130822
  Transmission Date: 20140515
  Serious: Yes (Other)
  Sender: FDA-Public Use
  Company Number: US-B.I. PHARMACEUTICALS,INC./RIDGEFIELD-2013-BI-24934GD

PATIENT
  Sex: 0

DRUGS (2)
  1. MELOXICAM [Suspect]
  2. PANCREATIC ENZYME PRODUCTS [Suspect]

REACTIONS (1)
  - Intestinal obstruction [Unknown]
